FAERS Safety Report 20223227 (Version 1)
Quarter: 2021Q4

REPORT INFORMATION
  Report Type: Spontaneous
  Country: DE (occurrence: DE)
  Receive Date: 20211223
  Receipt Date: 20211223
  Transmission Date: 20220303
  Serious: Yes (Other)
  Sender: FDA-Public Use
  Company Number: DE-ABBVIE-21K-062-4208177-00

PATIENT
  Age: 28 Year
  Sex: Female

DRUGS (3)
  1. VALPROATE SODIUM [Interacting]
     Active Substance: VALPROATE SODIUM
     Indication: Product used for unknown indication
     Route: 065
  2. FYCOMPA [Interacting]
     Active Substance: PERAMPANEL
     Indication: Product used for unknown indication
     Route: 065
  3. VIMPAT [Interacting]
     Active Substance: LACOSAMIDE
     Indication: Product used for unknown indication
     Dosage: 75MG 50MG 125MG PER
     Route: 065
     Dates: start: 2016

REACTIONS (6)
  - Seizure [Unknown]
  - Gait disturbance [Not Recovered/Not Resolved]
  - Fatigue [Unknown]
  - Off label use [Unknown]
  - Drug interaction [Unknown]
  - Diplopia [Unknown]
